FAERS Safety Report 23544635 (Version 1)
Quarter: 2024Q1

REPORT INFORMATION
  Report Type: Spontaneous
  Country: US (occurrence: UM)
  Receive Date: 20240220
  Receipt Date: 20240220
  Transmission Date: 20240410
  Serious: No
  Sender: FDA-Public Use
  Company Number: US-PFIZER INC-202400044269

PATIENT
  Age: 62 Year
  Sex: Male

DRUGS (1)
  1. INLYTA [Suspect]
     Active Substance: AXITINIB
     Dosage: 5MG TABLETS ORALLY EVERY 12 HOURS
     Route: 048
     Dates: start: 20231205

REACTIONS (3)
  - Hypertension [Unknown]
  - Tinnitus [Unknown]
  - Proteinuria [Not Recovered/Not Resolved]
